FAERS Safety Report 9252789 (Version 1)
Quarter: 2013Q2

REPORT INFORMATION
  Report Type: Spontaneous
  Country: US (occurrence: US)
  Receive Date: 20130424
  Receipt Date: 20130424
  Transmission Date: 20140414
  Serious: No
  Sender: FDA-Public Use
  Company Number: US-BAUSCH-BL-2012-002239

PATIENT
  Sex: Female

DRUGS (1)
  1. LOTEMAX (LOTEPREDNOL ETABONATE OPHTHALMIC SUSPENSION 0.5%) [Suspect]
     Indication: PRODUCT USED FOR UNKNOWN INDICATION
     Dosage: GTT; OPHTHALMIC
     Route: 047

REACTIONS (2)
  - Ocular hyperaemia [Unknown]
  - Eye inflammation [Unknown]
